FAERS Safety Report 7801504-1 (Version None)
Quarter: 2011Q4

REPORT INFORMATION
  Report Type: 
  Country: None (occurrence: None)
  Receive Date: 20111007
  Receipt Date: 20110928
  Transmission Date: 20120403
  Serious: Yes (Other)
  Sender: FDA-Public Use
  Company Number: FR-JNJFOC-20111000879

PATIENT
  Sex: Female

DRUGS (6)
  1. ISKEDYL [Concomitant]
     Route: 065
  2. TETRAZETS [Suspect]
     Indication: PRODUCT USED FOR UNKNOWN INDICATION
     Route: 048
     Dates: start: 20110401, end: 20110601
  3. SPIRONOLACTONE [Concomitant]
     Route: 065
  4. DURAGESIC-100 [Suspect]
     Route: 062
     Dates: start: 20110401, end: 20110601
  5. DURAGESIC-100 [Suspect]
     Indication: SURGERY
     Route: 062
  6. DEXTROPROPOXYPHENE [Suspect]
     Indication: PRODUCT USED FOR UNKNOWN INDICATION
     Route: 048
     Dates: start: 20110401, end: 20110601

REACTIONS (5)
  - BALANCE DISORDER [None]
  - INSOMNIA [None]
  - DISORIENTATION [None]
  - DEPRESSION [None]
  - OFF LABEL USE [None]
